FAERS Safety Report 14818839 (Version 1)
Quarter: 2018Q2

REPORT INFORMATION
  Report Type: Spontaneous
  Country: FR (occurrence: FR)
  Receive Date: 20180427
  Receipt Date: 20180427
  Transmission Date: 20180711
  Serious: Yes (Hospitalization)
  Sender: FDA-Public Use
  Company Number: FR-ASTRAZENECA-2018SE53544

PATIENT
  Age: 70 Year
  Sex: Female

DRUGS (7)
  1. PULMICORT TURBUHALER [Suspect]
     Active Substance: BUDESONIDE
     Indication: LUNG INFECTION
     Route: 055
     Dates: start: 20180321, end: 20180327
  2. ROCEPHINE [Suspect]
     Active Substance: CEFTRIAXONE SODIUM
     Indication: LUNG INFECTION
     Route: 042
     Dates: start: 20180321, end: 20180327
  3. BISOPROLOL HEMIFUMARATE [Concomitant]
     Active Substance: BISOPROLOL FUMARATE
  4. ELIQUIS [Concomitant]
     Active Substance: APIXABAN
  5. TERCIAN [Concomitant]
     Active Substance: CYAMEMAZINE
  6. BISOPROLOL [Concomitant]
     Active Substance: BISOPROLOL
  7. LANSOPRAZOLE. [Concomitant]
     Active Substance: LANSOPRAZOLE

REACTIONS (4)
  - Erythema [Recovering/Resolving]
  - Enanthema [Recovering/Resolving]
  - Blister [Recovering/Resolving]
  - Toxic skin eruption [Recovering/Resolving]

NARRATIVE: CASE EVENT DATE: 20180323
